FAERS Safety Report 6110352-2 (Version None)
Quarter: 2009Q1

REPORT INFORMATION
  Report Type: 
  Country: None (occurrence: None)
  Receive Date: 20090310
  Receipt Date: 20090302
  Transmission Date: 20090719
  Serious: Yes (Life-Threatening, Hospitalization)
  Sender: FDA-Public Use
  Company Number: JP-ASTRAZENECA-2009SE00931

PATIENT
  Age: 25778 Day
  Sex: Female
  Weight: 42 kg

DRUGS (4)
  1. BLOPRESS TABLETS 8 [Suspect]
     Indication: HYPERTENSION
     Route: 048
     Dates: start: 20070901, end: 20090204
  2. DEPAKENE [Concomitant]
     Indication: EPILEPSY
     Route: 048
  3. AMLODIPINE [Concomitant]
     Indication: HYPERTENSION
     Route: 048
     Dates: start: 20090107, end: 20090204
  4. SEROQUEL [Concomitant]
     Indication: RESTLESSNESS
     Route: 048
     Dates: start: 20090127

REACTIONS (1)
  - HYPOGLYCAEMIA [None]
